FAERS Safety Report 8045689 (Version 5)
Quarter: 2013Q2

REPORT INFORMATION
  Report Type: Spontaneous
  Country: US (occurrence: US)
  Receive Date: 20110720
  Receipt Date: 20130624
  Transmission Date: 20140414
  Serious: Yes (Life-Threatening, Hospitalization, Congenital Anomaly, Other)
  Sender: FDA-Public Use
  Company Number: US-PFIZER INC-2011158612

PATIENT
  Sex: Male
  Weight: 3 kg

DRUGS (4)
  1. EFFEXOR XR [Suspect]
     Indication: DEPRESSION
     Dosage: 75 MG, UNK
     Route: 064
     Dates: start: 200609
  2. EFFEXOR XR [Suspect]
     Indication: ANXIETY
  3. SYNTHROID [Concomitant]
     Indication: HYPOTHYROIDISM
     Dosage: UNK
     Route: 064
  4. VICODIN [Concomitant]
     Dosage: UNK
     Route: 064

REACTIONS (12)
  - Maternal exposure timing unspecified [Unknown]
  - Spina bifida [Unknown]
  - Respiratory distress [Recovered/Resolved]
  - Meningomyelocele [Unknown]
  - Hydrocephalus [Unknown]
  - Arnold-Chiari malformation [Unknown]
  - Hypoventilation [Unknown]
  - Myelodysplastic syndrome [Unknown]
  - Hydronephrosis [Recovered/Resolved]
  - Cerebral ventricle dilatation [Unknown]
  - Convulsion [Unknown]
  - Developmental delay [Unknown]
